FAERS Safety Report 24580803 (Version 1)
Quarter: 2024Q4

REPORT INFORMATION
  Report Type: Spontaneous
  Country: US (occurrence: None)
  Receive Date: 20241105
  Receipt Date: 20241105
  Transmission Date: 20250115
  Serious: Yes (Other)
  Sender: Public
  Company Number: None

PATIENT
  Age: 68 Year
  Sex: Female
  Weight: 87.54 kg

DRUGS (4)
  1. OZEMPIC [Suspect]
     Active Substance: SEMAGLUTIDE
     Indication: Diabetes mellitus
     Dosage: OTHER FREQUENCY : OTHER;?OTHER ROUTE : GIVEN INTO/UNDER THE SKIN;?
     Route: 050
     Dates: start: 20240927, end: 20241101
  2. FUROSEMIDE [Concomitant]
     Active Substance: FUROSEMIDE
  3. HUMALOG [Concomitant]
     Active Substance: INSULIN LISPRO
  4. LANTUS [Concomitant]
     Active Substance: INSULIN GLARGINE

REACTIONS (7)
  - Neuropathy peripheral [None]
  - Insomnia [None]
  - Gait disturbance [None]
  - Joint swelling [None]
  - Peripheral swelling [None]
  - Sunburn [None]
  - Scab [None]

NARRATIVE: CASE EVENT DATE: 20240928
